FAERS Safety Report 6339451-7 (Version None)
Quarter: 2009Q3

REPORT INFORMATION
  Report Type: 
  Country: None (occurrence: None)
  Receive Date: 20090903
  Receipt Date: 20090828
  Transmission Date: 20100115
  Serious: Yes (Hospitalization)
  Sender: FDA-Public Use
  Company Number: US-ELI_LILLY_AND_COMPANY-US200908006393

PATIENT
  Sex: Female

DRUGS (3)
  1. HUMALOG [Suspect]
     Dosage: UNK, UNK
     Dates: start: 20050101
  2. HUMALOG [Suspect]
     Dosage: UNK, UNKNOWN
  3. LANTUS [Concomitant]

REACTIONS (4)
  - ARTHRALGIA [None]
  - FEELING ABNORMAL [None]
  - KNEE ARTHROPLASTY [None]
  - WRONG TECHNIQUE IN DRUG USAGE PROCESS [None]
